FAERS Safety Report 9322442 (Version 1)
Quarter: 2013Q2

REPORT INFORMATION
  Report Type: Spontaneous
  Country: US (occurrence: US)
  Receive Date: 20130531
  Receipt Date: 20130531
  Transmission Date: 20140414
  Serious: Yes (Hospitalization, Other)
  Sender: FDA-Public Use
  Company Number: US-009507513-1010USA00674

PATIENT
  Sex: Female
  Weight: 81.65 kg

DRUGS (6)
  1. FOSAMAX [Suspect]
     Indication: OSTEOPOROSIS
     Dosage: 10 MG, QD
     Route: 048
     Dates: start: 19970617, end: 20010209
  2. FOSAMAX [Suspect]
     Indication: OSTEOPOROSIS PROPHYLAXIS
     Dosage: 70 MG, QW
     Route: 048
     Dates: start: 20010209, end: 20050309
  3. MK-9278 [Concomitant]
     Dosage: UNK UNK, QD
     Dates: start: 1996
  4. CALCIUM (UNSPECIFIED) [Concomitant]
     Dosage: 3000 MG, QD
     Dates: start: 1996
  5. VITAMIN D (UNSPECIFIED) [Concomitant]
     Dosage: 4000 MG, QD
     Dates: start: 1996
  6. FOSAMAX PLUS D [Suspect]
     Indication: OSTEOPOROSIS
     Dosage: 70 MG, QW
     Route: 048
     Dates: start: 200708, end: 20080322

REACTIONS (63)
  - Intramedullary rod insertion [Unknown]
  - Femur fracture [Unknown]
  - Femur fracture [Unknown]
  - Femur fracture [Unknown]
  - Femur fracture [Unknown]
  - Femur fracture [Unknown]
  - Femur fracture [Unknown]
  - Retinal detachment [Unknown]
  - Tibia fracture [Unknown]
  - Hip arthroplasty [Recovering/Resolving]
  - Femur fracture [Unknown]
  - Bone loss [Unknown]
  - Low turnover osteopathy [Unknown]
  - Tooth disorder [Not Recovered/Not Resolved]
  - Tendonitis [Not Recovered/Not Resolved]
  - Ecchymosis [Unknown]
  - Muscular weakness [Not Recovered/Not Resolved]
  - Cyst [Unknown]
  - Stress at work [Not Recovered/Not Resolved]
  - Plantar fasciitis [Recovering/Resolving]
  - Periarthritis [Unknown]
  - Bone metabolism disorder [Not Recovered/Not Resolved]
  - Rosacea [Unknown]
  - Stress fracture [Unknown]
  - Back injury [Unknown]
  - Visual impairment [Unknown]
  - Ligament sprain [Unknown]
  - Obesity [Unknown]
  - Migraine [Not Recovered/Not Resolved]
  - Sinus tarsi syndrome [Unknown]
  - Limb malformation [Unknown]
  - Synovial cyst [Unknown]
  - Limb injury [Unknown]
  - Fall [Unknown]
  - Periprosthetic osteolysis [Unknown]
  - Rectal haemorrhage [Unknown]
  - Weight increased [Unknown]
  - Impaired healing [Unknown]
  - Jaw cyst [Unknown]
  - Tendon disorder [Unknown]
  - Bursitis [Unknown]
  - Jaw fracture [Unknown]
  - Malabsorption [Unknown]
  - Procedural haemorrhage [Unknown]
  - Manganese decreased [Unknown]
  - Spinal osteoarthritis [Unknown]
  - Irritable bowel syndrome [Unknown]
  - Fracture nonunion [Unknown]
  - Bladder dilatation [Unknown]
  - Osteoarthritis [Unknown]
  - Osteopenia [Unknown]
  - Fracture nonunion [Unknown]
  - Hyperparathyroidism [Unknown]
  - Type 2 diabetes mellitus [Unknown]
  - Oedema [Unknown]
  - Device failure [Recovering/Resolving]
  - Bone loss [Recovering/Resolving]
  - Diarrhoea [Unknown]
  - Abdominal distension [Unknown]
  - Gastrooesophageal reflux disease [Unknown]
  - Arthralgia [Unknown]
  - Dizziness [Unknown]
  - Arthralgia [Unknown]
